FAERS Safety Report 7502379-0 (Version None)
Quarter: 2011Q2

REPORT INFORMATION
  Report Type: 
  Country: None (occurrence: None)
  Receive Date: 20110525
  Receipt Date: 20110505
  Transmission Date: 20111010
  Serious: Yes (Hospitalization, Other)
  Sender: FDA-Public Use
  Company Number: US-BAYER-2011-007940

PATIENT
  Age: 20 Year
  Sex: Female
  Weight: 68 kg

DRUGS (12)
  1. TESSALON [Concomitant]
     Route: 048
  2. PREDNISONE [Concomitant]
     Dosage: UNK
     Route: 048
     Dates: start: 20081220
  3. ACETAMINOPHEN [Concomitant]
  4. CELEXA [Concomitant]
     Dosage: 20 MG, UNK
     Route: 048
  5. XANAX [Concomitant]
     Indication: ANXIETY
     Dosage: UNK UNK, PRN
     Route: 048
  6. ALBUTEROL SULFATE AUTOHALER [Concomitant]
     Dosage: UNK
     Dates: start: 20081220
  7. YAZ [Suspect]
     Indication: PREMENSTRUAL SYNDROME
  8. MOTRIN [Concomitant]
  9. YAZ [Suspect]
     Indication: ACNE
     Dosage: UNK
     Dates: start: 20080929, end: 20090808
  10. KEFLEX [Concomitant]
     Route: 048
  11. DEXAMETHASONE [Concomitant]
     Dosage: UNK
     Route: 030
     Dates: start: 20081220, end: 20081220
  12. ROBITUSSIN AC [Concomitant]
     Dosage: UNK UNK, PRN
     Route: 048
     Dates: start: 20081220

REACTIONS (8)
  - DIARRHOEA [None]
  - GALLBLADDER DISORDER [None]
  - CHOLECYSTITIS CHRONIC [None]
  - INJURY [None]
  - CHEST PAIN [None]
  - NAUSEA [None]
  - ABDOMINAL PAIN [None]
  - PAIN [None]
